FAERS Safety Report 6651090-7 (Version None)
Quarter: 2010Q1

REPORT INFORMATION
  Report Type: 
  Country: None (occurrence: None)
  Receive Date: 20100325
  Receipt Date: 20100315
  Transmission Date: 20100710
  Serious: Yes (Other)
  Sender: FDA-Public Use
  Company Number: GB-PFIZER INC-2010006686

PATIENT
  Age: 52 Year
  Sex: Female
  Weight: 69.3 kg

DRUGS (1)
  1. CHAMPIX [Suspect]
     Indication: SMOKING CESSATION THERAPY
     Dosage: 1 MG, 2X/DAY
     Route: 048
     Dates: start: 20091027, end: 20091106

REACTIONS (5)
  - ABNORMAL DREAMS [None]
  - DEPRESSION [None]
  - ORAL PAIN [None]
  - RENAL PAIN [None]
  - TOOTHACHE [None]
